FAERS Safety Report 6155045-0 (Version None)
Quarter: 2009Q2

REPORT INFORMATION
  Report Type: 
  Country: None (occurrence: None)
  Receive Date: 20090410
  Receipt Date: 20090331
  Transmission Date: 20091009
  Serious: Yes (Death)
  Sender: FDA-Public Use
  Company Number: CIP09000867

PATIENT
  Age: 65 Year
  Sex: Female

DRUGS (6)
  1. RISEDRONATE SODIUM [Suspect]
     Indication: OSTEOPOROSIS
     Dosage: 17.5 MG ONCE WEEKLY, ORAL
     Route: 048
     Dates: start: 20070817, end: 20090314
  2. LANSOPRAZOLE [Suspect]
     Indication: PROPHYLAXIS AGAINST GASTROINTESTINAL ULCER
     Dates: start: 20080523, end: 20090315
  3. OSTELUC (ETODOLAC) [Suspect]
     Indication: RHEUMATOID ARTHRITIS
     Dosage: 400 MG
     Dates: start: 20050428, end: 20090315
  4. ALOSENN /00476901/ (ACHILLEA MILLEFOLIUM, RUBIA TINCTORUM ROOT TINCTUR [Suspect]
     Indication: CONSTIPATION
     Dosage: 1 G
     Dates: start: 20050126, end: 20090314
  5. ADALAT [Suspect]
     Indication: HYPERTENSION
     Dosage: 20 MG
     Dates: start: 20080620, end: 20090315
  6. PREDNISOLONE [Suspect]
     Indication: RHEUMATOID ARTHRITIS
     Dosage: 7.5 MG
     Dates: start: 20090206, end: 20090315

REACTIONS (3)
  - CARDIAC FAILURE [None]
  - LOSS OF CONSCIOUSNESS [None]
  - MALAISE [None]
